FAERS Safety Report 8891040 (Version 3)
Quarter: 2012Q4

REPORT INFORMATION
  Report Type: Report from Study
  Country: SK (occurrence: SK)
  Receive Date: 20121107
  Receipt Date: 20121231
  Transmission Date: 20130627
  Serious: Yes (Hospitalization)
  Sender: FDA-Public Use
  Company Number: SK-ROCHE-1153307

PATIENT
  Age: 65 Year
  Sex: Male

DRUGS (3)
  1. RITUXIMAB [Suspect]
     Indication: CHRONIC LYMPHOCYTIC LEUKAEMIA
     Dosage: Last dose prior to SAE was 12/Sep/2012
     Route: 042
     Dates: start: 20111005, end: 20121205
  2. PRESTARIUM (SLOVAKIA) [Concomitant]
     Route: 065
     Dates: start: 20120831, end: 20121002
  3. HELICID [Concomitant]
     Route: 065
     Dates: start: 20121105

REACTIONS (2)
  - Dermatitis allergic [Recovered/Resolved]
  - Dermatitis allergic [Recovered/Resolved]
